FAERS Safety Report 8517850-2 (Version None)
Quarter: 2012Q3

REPORT INFORMATION
  Report Type: 
  Country: None (occurrence: None)
  Receive Date: 20120712
  Receipt Date: 20120712
  Transmission Date: 20120928
  Serious: Yes (Hospitalization, Disabling)
  Sender: FDA-Public Use
  Company Number: None

PATIENT
  Sex: Male
  Weight: 74.8435 kg

DRUGS (1)
  1. LOTRIMIN [Suspect]
     Indication: TINEA PEDIS
     Dosage: ONCE A DAY TOP
     Route: 061
     Dates: start: 20120627, end: 20120629

REACTIONS (4)
  - APPLICATION SITE SWELLING [None]
  - ABASIA [None]
  - APPLICATION SITE VESICLES [None]
  - ACTIVITIES OF DAILY LIVING IMPAIRED [None]
